FAERS Safety Report 9204852 (Version 2)
Quarter: 2013Q2

REPORT INFORMATION
  Report Type: Report from Study
  Country: US (occurrence: US)
  Receive Date: 20130402
  Receipt Date: 20130411
  Transmission Date: 20140414
  Serious: Yes (Hospitalization, Other)
  Sender: FDA-Public Use
  Company Number: US-BAYER-2013-008576

PATIENT
  Age: 78 Year
  Sex: Male

DRUGS (8)
  1. STIVARGA [Suspect]
     Indication: COLON CANCER
     Dosage: 160 MG, QD (40 MG, 4 TABLETS QD)
     Route: 048
     Dates: start: 20130114, end: 20130325
  2. ANTIBIOTICS [Concomitant]
     Indication: WHITE BLOOD CELL COUNT DECREASED
  3. SIMVASTATIN [Concomitant]
     Dosage: 10 MG HS
  4. MORPHINE [Concomitant]
     Dosage: 30 MG, BID
  5. ALLOPURINOL [Concomitant]
     Dosage: 300 MG PER DAY
  6. METOPROLOL [Concomitant]
     Dosage: 50 MG, BID
  7. HYDROCHLOROTHIAZIDE [Concomitant]
     Dosage: 25 MG DAILY
  8. NIACIN [Concomitant]
     Dosage: 1 GM DAILY

REACTIONS (9)
  - Pneumonia [None]
  - Pyrexia [None]
  - Asthenia [Not Recovered/Not Resolved]
  - Pain [Not Recovered/Not Resolved]
  - Fatigue [Not Recovered/Not Resolved]
  - Decreased appetite [Not Recovered/Not Resolved]
  - Oral pain [Recovered/Resolved]
  - Flushing [Recovered/Resolved]
  - Drug ineffective [None]
